FAERS Safety Report 6755633-4 (Version None)
Quarter: 2010Q2

REPORT INFORMATION
  Report Type: 
  Country: None (occurrence: None)
  Receive Date: 20100604
  Receipt Date: 20100525
  Transmission Date: 20101027
  Serious: Yes (Death, Hospitalization, Other)
  Sender: FDA-Public Use
  Company Number: US-BAYER-201016590NA

PATIENT
  Age: 27 Year
  Sex: Female

DRUGS (4)
  1. YASMIN [Suspect]
     Indication: DRUG USE FOR UNKNOWN INDICATION
     Dosage: DATE OF PURCHASE APPROX. 10 MARCH 2009
     Route: 048
     Dates: start: 20090306, end: 20090310
  2. OCELLA [Suspect]
     Indication: DRUG USE FOR UNKNOWN INDICATION
     Dosage: DATE OF PURCHASE APPROX. 05 MARCH 2009
     Route: 048
  3. FUROSEMIDE [Concomitant]
     Route: 065
     Dates: start: 20090101
  4. SULFAMELHOXAZOLE [Concomitant]
     Route: 065
     Dates: start: 20090201

REACTIONS (3)
  - CARDIO-RESPIRATORY ARREST [None]
  - DYSPNOEA [None]
  - PULMONARY EMBOLISM [None]
